FAERS Safety Report 11771341 (Version 1)
Quarter: 2015Q4

REPORT INFORMATION
  Report Type: Report from Study
  Country: US (occurrence: US)
  Receive Date: 20151124
  Receipt Date: 20151124
  Transmission Date: 20160304
  Serious: No
  Sender: FDA-Public Use
  Company Number: US-AMGEN-USASL2015123510

PATIENT
  Age: 64 Year
  Sex: Male

DRUGS (1)
  1. ENBREL [Suspect]
     Active Substance: ETANERCEPT
     Indication: PSORIASIS
     Dosage: UNK
     Route: 065
     Dates: start: 1990

REACTIONS (8)
  - Surgery [Unknown]
  - Intentional product misuse [Unknown]
  - Skin infection [Unknown]
  - Local swelling [Unknown]
  - Scratch [Unknown]
  - Biopsy [Unknown]
  - Laceration [Unknown]
  - Erythema [Unknown]
